FAERS Safety Report 9716574 (Version 4)
Quarter: 2013Q4

REPORT INFORMATION
  Report Type: Spontaneous
  Country: IT (occurrence: IT)
  Receive Date: 20131127
  Receipt Date: 20131223
  Transmission Date: 20140711
  Serious: Yes (Other)
  Sender: FDA-Public Use
  Company Number: IT-MERCK-1311ITA010271

PATIENT
  Age: 47 Year
  Sex: Male
  Weight: 54 kg

DRUGS (6)
  1. REBETOL [Suspect]
     Indication: CHRONIC HEPATITIS C
     Dosage: 800 MG, QD, 800MG DAILY
     Route: 048
     Dates: start: 20130402
  2. REBETOL [Suspect]
     Indication: HEPATIC CIRRHOSIS
  3. PEGINTRON [Suspect]
     Indication: CHRONIC HEPATITIS C
     Dosage: 80 MICROGRAM POWDER AND SOLVENT FOR INJECTION, QW
     Route: 058
     Dates: start: 20130402
  4. PEGINTRON [Suspect]
     Indication: HEPATIC CIRRHOSIS
  5. VICTRELIS [Suspect]
     Indication: CHRONIC HEPATITIS C
     Dosage: 2400 MILLIGRAMS DAILY
     Route: 048
     Dates: start: 20130602
  6. VICTRELIS [Suspect]
     Indication: HEPATIC CIRRHOSIS

REACTIONS (2)
  - Hypoacusis [Not Recovered/Not Resolved]
  - Tinnitus [Recovered/Resolved]
